FAERS Safety Report 5122301-4 (Version None)
Quarter: 2006Q4

REPORT INFORMATION
  Report Type: 
  Country: None (occurrence: None)
  Receive Date: 20061003
  Receipt Date: 20060922
  Transmission Date: 20070319
  Serious: Yes (Other)
  Sender: FDA-Public Use
  Company Number: 2006061492

PATIENT
  Age: 19 Year
  Sex: Male

DRUGS (1)
  1. SUDAFED PE (PHENYLEPHRINE) [Suspect]
     Indication: EUPHORIC MOOD
     Dosage: LARGE AMOUNTS OVER 2 MOS; 24 TABLETS/DAY, ORAL
     Route: 048
     Dates: start: 20060101

REACTIONS (6)
  - CONFUSIONAL STATE [None]
  - HEART RATE INCREASED [None]
  - HYPERTENSION [None]
  - INCORRECT DOSE ADMINISTERED [None]
  - INTENTIONAL DRUG MISUSE [None]
  - TREMOR [None]
